FAERS Safety Report 17136893 (Version 1)
Quarter: 2019Q4

REPORT INFORMATION
  Report Type: Report from Study
  Country: DE (occurrence: DE)
  Receive Date: 20191210
  Receipt Date: 20191210
  Transmission Date: 20200122
  Serious: Yes (Hospitalization)
  Sender: FDA-Public Use
  Company Number: DE-CELGENEUS-DEU-20191100049

PATIENT
  Age: 80 Year
  Sex: Male
  Weight: 73 kg

DRUGS (15)
  1. AG-120 [Suspect]
     Active Substance: IVOSIDENIB
     Dosage: 500 MILLIGRAM
     Route: 048
     Dates: start: 20191022
  2. PANTOPRAZOL [Concomitant]
     Active Substance: PANTOPRAZOLE SODIUM
     Indication: PRODUCT USED FOR UNKNOWN INDICATION
     Dosage: 40 MILLIGRAM
     Route: 048
     Dates: start: 20190702
  3. ADENURIC [Concomitant]
     Active Substance: FEBUXOSTAT
     Indication: PRODUCT USED FOR UNKNOWN INDICATION
     Dosage: 80 MILLIGRAM
     Route: 048
     Dates: start: 20190807
  4. AMPHO-MORONAL [Concomitant]
     Active Substance: AMPHOTERICIN B
     Indication: PRODUCT USED FOR UNKNOWN INDICATION
     Dosage: 20 MILLILITER
     Route: 060
     Dates: start: 20190807
  5. AG-120 [Suspect]
     Active Substance: IVOSIDENIB
     Indication: ACUTE MYELOID LEUKAEMIA
     Dosage: 500 MILLIGRAM
     Route: 048
     Dates: start: 20190628, end: 20191018
  6. GRANISETRON [Concomitant]
     Active Substance: GRANISETRON
     Indication: PRODUCT USED FOR UNKNOWN INDICATION
     Route: 048
     Dates: start: 20190628
  7. CIPROBAY (CIPROFLOXACIN) [Concomitant]
     Active Substance: CIPROFLOXACIN
     Indication: PRODUCT USED FOR UNKNOWN INDICATION
     Dosage: 1000 MILLIGRAM
     Route: 048
     Dates: start: 20190713
  8. CIPROFLOXACIN. [Concomitant]
     Active Substance: CIPROFLOXACIN
     Indication: PRODUCT USED FOR UNKNOWN INDICATION
     Dosage: 1000 MILLIGRAM
     Route: 048
     Dates: start: 20190725
  9. KALINOR [Concomitant]
     Indication: PRODUCT USED FOR UNKNOWN INDICATION
     Dosage: 1 TABLET
     Route: 048
     Dates: start: 20190708
  10. VITAMIN B12 [Concomitant]
     Active Substance: CYANOCOBALAMIN
     Indication: PRODUCT USED FOR UNKNOWN INDICATION
     Dosage: 1000 MICROGRAM
     Route: 058
     Dates: start: 20190604
  11. LAXANS [Concomitant]
     Indication: PRODUCT USED FOR UNKNOWN INDICATION
     Route: 048
     Dates: start: 20190701
  12. MCP [Concomitant]
     Active Substance: METOCLOPRAMIDE HYDROCHLORIDE
     Indication: PRODUCT USED FOR UNKNOWN INDICATION
     Route: 048
     Dates: start: 20190704
  13. AZACITIDINE. [Suspect]
     Active Substance: AZACITIDINE
     Indication: ACUTE MYELOID LEUKAEMIA
     Dosage: 145.5 MILLIGRAM
     Route: 058
     Dates: start: 20190628, end: 20190801
  14. AZACITIDINE. [Suspect]
     Active Substance: AZACITIDINE
     Dosage: 145 MILLIGRAM
     Route: 058
     Dates: start: 20190823, end: 20191018
  15. AZACITIDINE. [Suspect]
     Active Substance: AZACITIDINE
     Dosage: 145 MILLIGRAM
     Route: 058
     Dates: start: 20191022

REACTIONS (1)
  - Acute myeloid leukaemia recurrent [Recovered/Resolved]

NARRATIVE: CASE EVENT DATE: 20191004
